FAERS Safety Report 8327908-9 (Version None)
Quarter: 2012Q2

REPORT INFORMATION
  Report Type: 
  Country: None (occurrence: None)
  Receive Date: 20120502
  Receipt Date: 20120423
  Transmission Date: 20120825
  Serious: Yes (Hospitalization, Other)
  Sender: FDA-Public Use
  Company Number: US-BAYER-2011-110615

PATIENT
  Age: 35 Year
  Sex: Female
  Weight: 65.76 kg

DRUGS (10)
  1. YASMIN [Suspect]
     Indication: CONTRACEPTION
     Dosage: UNK
     Route: 048
     Dates: start: 20030201, end: 20070401
  2. QVAR 40 [Concomitant]
     Dosage: 2 PUFFS BID
  3. SINGULAIR [Concomitant]
     Indication: ASTHMA
     Dosage: UNK UNK, PRN
  4. CLARINEX [Concomitant]
     Dosage: 5 MG, QD
  5. YASMIN [Suspect]
     Indication: MENSTRUAL CYCLE MANAGEMENT
  6. YASMIN [Suspect]
     Indication: ACNE
  7. YASMIN [Suspect]
     Indication: PREMENSTRUAL SYNDROME
  8. EFFEXOR [Concomitant]
     Indication: DEPRESSION
     Dosage: 1 TABLET QD
  9. CARDIZEM [Concomitant]
     Dosage: 240 MG, QD
  10. TOPROL-XL [Concomitant]
     Dosage: 100 MG, UNK

REACTIONS (8)
  - ANXIETY [None]
  - EMOTIONAL DISTRESS [None]
  - FEAR [None]
  - PULMONARY EMBOLISM [None]
  - DEEP VEIN THROMBOSIS [None]
  - GENERAL PHYSICAL HEALTH DETERIORATION [None]
  - CHEST PAIN [None]
  - PHLEBITIS [None]
